FAERS Safety Report 5974230-1 (Version None)
Quarter: 2008Q4

REPORT INFORMATION
  Report Type: 
  Country: None (occurrence: None)
  Receive Date: 20081201
  Receipt Date: 20081127
  Transmission Date: 20090506
  Serious: Yes (Death)
  Sender: FDA-Public Use
  Company Number: PH-PFIZER INC-2008080413

PATIENT
  Sex: Male

DRUGS (1)
  1. SULPERAZONE [Suspect]
     Indication: LOWER RESPIRATORY TRACT INFECTION
     Dates: start: 20080810, end: 20080811

REACTIONS (1)
  - ACUTE RESPIRATORY FAILURE [None]
